FAERS Safety Report 21710521 (Version 3)
Quarter: 2023Q1

REPORT INFORMATION
  Report Type: Report from Study
  Country: US (occurrence: US)
  Receive Date: 20221212
  Receipt Date: 20230215
  Transmission Date: 20230417
  Serious: Yes (Hospitalization)
  Sender: FDA-Public Use
  Company Number: US-002147023-NVSC2022US240703

PATIENT
  Sex: Female
  Weight: 51.977 kg

DRUGS (4)
  1. TREPROSTINIL [Suspect]
     Active Substance: TREPROSTINIL
     Indication: Pulmonary arterial hypertension
     Dosage: 100 NG/KG/MIN, CONT
     Route: 042
     Dates: start: 20220921
  2. TREPROSTINIL [Suspect]
     Active Substance: TREPROSTINIL
     Dosage: 113 NG/KG/MIN, CONT
     Route: 042
  3. LETAIRIS [Concomitant]
     Active Substance: AMBRISENTAN
     Indication: Product used for unknown indication
     Dosage: UNK
     Route: 065
  4. TADALAFIL [Concomitant]
     Active Substance: TADALAFIL
     Indication: Product used for unknown indication
     Dosage: UNK
     Route: 065

REACTIONS (4)
  - Anaemia [Unknown]
  - Haemoptysis [Unknown]
  - Pulmonary hypertension [Unknown]
  - Dehydration [Unknown]
